FAERS Safety Report 13558145 (Version 1)
Quarter: 2017Q2

REPORT INFORMATION
  Report Type: Spontaneous
  Country: US (occurrence: US)
  Receive Date: 20170518
  Receipt Date: 20170518
  Transmission Date: 20170830
  Serious: Yes (Hospitalization, Other)
  Sender: FDA-Public Use
  Company Number: US-GLAXOSMITHKLINE-US2017072773

PATIENT
  Age: 87 Year
  Sex: Female

DRUGS (12)
  1. DILTIAZEM. [Concomitant]
     Active Substance: DILTIAZEM
  2. PRAVASTATIN. [Concomitant]
     Active Substance: PRAVASTATIN
  3. BREO ELLIPTA [Suspect]
     Active Substance: FLUTICASONE FUROATE\VILANTEROL TRIFENATATE
     Indication: CHRONIC OBSTRUCTIVE PULMONARY DISEASE
     Dosage: 1 PUFF(S), QD
     Route: 055
  4. DULOXETINE. [Concomitant]
     Active Substance: DULOXETINE
  5. LEVOTHYROXINE. [Concomitant]
     Active Substance: LEVOTHYROXINE
  6. COQ10 [Concomitant]
     Active Substance: UBIDECARENONE
  7. PYRIDOSTIGMINE [Concomitant]
     Active Substance: PYRIDOSTIGMINE
  8. CARVEDILOL. [Concomitant]
     Active Substance: CARVEDILOL
  9. LORAZEPAM. [Concomitant]
     Active Substance: LORAZEPAM
  10. GABAPENTIN. [Concomitant]
     Active Substance: GABAPENTIN
  11. PREDNISONE. [Concomitant]
     Active Substance: PREDNISONE
  12. TORSEMIDE. [Concomitant]
     Active Substance: TORSEMIDE

REACTIONS (5)
  - Pneumonia [Recovered/Resolved]
  - Lower respiratory tract infection viral [Recovered/Resolved]
  - Asthenia [Recovered/Resolved]
  - Drug ineffective [Not Recovered/Not Resolved]
  - Dyspnoea [Not Recovered/Not Resolved]

NARRATIVE: CASE EVENT DATE: 201704
